FAERS Safety Report 5221890-9 (Version None)
Quarter: 2007Q1

REPORT INFORMATION
  Report Type: 
  Country: None (occurrence: None)
  Receive Date: 20070126
  Receipt Date: 20070126
  Transmission Date: 20070707
  Serious: Yes (Hospitalization)
  Sender: FDA-Public Use
  Company Number: None

PATIENT
  Age: 75 Year
  Sex: Male
  Weight: 77 kg

DRUGS (14)
  1. VANCOMYCIN [Suspect]
     Indication: OSTEOMYELITIS
     Dosage: 1 GM  TWICE DAILY  IV
     Route: 042
     Dates: start: 20060702, end: 20060728
  2. CIPROFLOXACIN [Suspect]
     Indication: OSTEOMYELITIS
     Dosage: 500MG  Q12H   PO
     Route: 048
     Dates: start: 20060702, end: 20060728
  3. CIPROFLOXACIN HCL [Concomitant]
  4. DOCUSATE NA [Concomitant]
  5. FERROUS SULFATE TAB [Concomitant]
  6. FUROSEMIDE [Concomitant]
  7. GABAPENTIN [Concomitant]
  8. LISINOPRIL [Concomitant]
  9. METOPROLOL TARTRATE [Concomitant]
  10. RANITIDNE HCL [Concomitant]
  11. SIMVASTATIN [Concomitant]
  12. VANCOMYCIN [Concomitant]
  13. COUMADIN [Concomitant]
  14. MS CONTIN [Concomitant]

REACTIONS (9)
  - ASTERIXIS [None]
  - AZOTAEMIA [None]
  - BLOOD PHOSPHORUS INCREASED [None]
  - BLOOD POTASSIUM INCREASED [None]
  - DIALYSIS [None]
  - INTERNATIONAL NORMALISED RATIO INCREASED [None]
  - NEPHRITIS INTERSTITIAL [None]
  - REFUSAL OF TREATMENT BY PATIENT [None]
  - RENAL FAILURE ACUTE [None]
